FAERS Safety Report 6711823-8 (Version None)
Quarter: 2010Q2

REPORT INFORMATION
  Report Type: 
  Country: None (occurrence: None)
  Receive Date: 20100505
  Receipt Date: 20100422
  Transmission Date: 20101027
  Serious: Yes (Other)
  Sender: FDA-Public Use
  Company Number: US-CELGENEUS-163-21880-10040735

PATIENT
  Sex: Male

DRUGS (10)
  1. REVLIMID [Suspect]
     Route: 048
     Dates: start: 20081110
  2. REVLIMID [Suspect]
     Route: 048
     Dates: start: 20081110
  3. CENTRUM SILVER [Concomitant]
     Indication: SUPPLEMENTATION THERAPY
     Route: 048
  4. CITRUCEL [Concomitant]
     Indication: CONSTIPATION
     Route: 048
  5. ECOTRIN [Concomitant]
     Indication: ANTICOAGULANT THERAPY
     Route: 048
  6. LOVASTATIN [Concomitant]
     Indication: DRUG USE FOR UNKNOWN INDICATION
     Route: 048
  7. METOPROLOL TARTRATE [Concomitant]
     Indication: HYPERTENSION
     Route: 048
  8. UROXATROL [Concomitant]
     Route: 048
  9. VALTREX [Concomitant]
     Indication: DRUG USE FOR UNKNOWN INDICATION
     Route: 048
  10. VIAGRA [Concomitant]
     Indication: DRUG USE FOR UNKNOWN INDICATION
     Route: 048

REACTIONS (1)
  - PROSTATE CANCER [None]
